FAERS Safety Report 14518543 (Version 3)
Quarter: 2018Q2

REPORT INFORMATION
  Report Type: Spontaneous
  Country: US (occurrence: US)
  Receive Date: 20180212
  Receipt Date: 20180615
  Transmission Date: 20180711
  Serious: No
  Sender: FDA-Public Use
  Company Number: US-PFIZER INC-2018060179

PATIENT
  Age: 36 Year
  Sex: Female

DRUGS (1)
  1. XELJANZ [Suspect]
     Active Substance: TOFACITINIB CITRATE
     Indication: BREAST CANCER FEMALE
     Dosage: 5 MG, UNK
     Dates: end: 20180611

REACTIONS (4)
  - Oropharyngeal pain [Unknown]
  - Rhinorrhoea [Unknown]
  - Product use in unapproved indication [Unknown]
  - Fatigue [Unknown]

NARRATIVE: CASE EVENT DATE: 20180206
